FAERS Safety Report 7075129-2 (Version None)
Quarter: 2010Q4

REPORT INFORMATION
  Report Type: 
  Country: None (occurrence: None)
  Receive Date: 20101029
  Receipt Date: 20100414
  Transmission Date: 20110411
  Serious: No
  Sender: FDA-Public Use
  Company Number: US-WYE-H14656110

PATIENT
  Age: 49 Year
  Sex: Female
  Weight: 68.55 kg

DRUGS (1)
  1. ALAVERT [Suspect]
     Indication: RHINORRHOEA
     Route: 048
     Dates: start: 20100411, end: 20100412

REACTIONS (1)
  - MOUTH ULCERATION [None]
